FAERS Safety Report 18496462 (Version 4)
Quarter: 2020Q4

REPORT INFORMATION
  Report Type: Report from Study
  Country: US (occurrence: US)
  Receive Date: 20201112
  Receipt Date: 20201208
  Transmission Date: 20210114
  Serious: Yes (Hospitalization)
  Sender: FDA-Public Use
  Company Number: US-ALLERGAN-2043826US

PATIENT
  Sex: Female
  Weight: 68.8 kg

DRUGS (17)
  1. ORTHO CYCLEN [Concomitant]
     Active Substance: ETHINYL ESTRADIOL\NORGESTIMATE
     Indication: DYSMENORRHOEA
     Dosage: 1 DF (0.25 MG -35 MCG), QAM, DO NOT TAKE PLACEBO PILL FOR THE FIRST TWO PACKS
     Route: 048
  2. ELAVIL [Concomitant]
     Active Substance: AMITRIPTYLINE HYDROCHLORIDE
     Dosage: 25 MG, QHS
     Route: 048
  3. PERIACTIN [Concomitant]
     Active Substance: CYPROHEPTADINE HYDROCHLORIDE
     Dosage: 4 MG, QHS
     Route: 048
  4. ZOLOFT [Concomitant]
     Active Substance: SERTRALINE HYDROCHLORIDE
     Indication: DEPRESSION
     Dosage: 100 MG, QHS
     Route: 048
     Dates: start: 2019
  5. PREMARIN [Concomitant]
     Active Substance: ESTROGENS, CONJUGATED
     Dosage: 1 G, QD
     Route: 061
  6. ABILIFY [Concomitant]
     Active Substance: ARIPIPRAZOLE
     Indication: HALLUCINATION, VISUAL
  7. MIRALAX [Concomitant]
     Active Substance: POLYETHYLENE GLYCOL 3350
     Dosage: DAY 1: 14 CAPFULS IN 64OZ OF LIQUID
  8. DEPO-PROVERA [Concomitant]
     Active Substance: MEDROXYPROGESTERONE ACETATE
     Indication: OVARIAN CYST
     Dosage: 150 MG, Q3MONTHS, SHOT
     Route: 030
     Dates: start: 2019
  9. MIRALAX [Concomitant]
     Active Substance: POLYETHYLENE GLYCOL 3350
     Dosage: STARTING DAY 2: 1 CAP DAILY IN 8OZ OF LIQUID, IF STOOLS ARE TOO LIQUID DECREASE TO 1/2 OF CAPFUL
  10. AYGESTIN [Concomitant]
     Active Substance: NORETHINDRONE ACETATE
     Indication: METRORRHAGIA
     Dosage: 10 MG, QD FOR 10 DAYS FOR BTB ON DEPO PROVERA, REPEAT AS NEEDED
  11. DIFLUCAN [Concomitant]
     Active Substance: FLUCONAZOLE
     Dosage: 150 MG, QD, IF SYMPTOMS HAVE NOT RESOLVED IN 72 HOURS TAKE A SECOND DOSE
     Route: 048
  12. NUVARING [Concomitant]
     Active Substance: ETHINYL ESTRADIOL\ETONOGESTREL
     Dosage: 0.12-0.015 MG/24 HR RING FOR 3 WKS, AT THE END OF 3RD WK DISCONTINUE RING FOR 7 DAYS TO ALLOW PERIOD
     Route: 067
  13. ORTHO EVRA [Concomitant]
     Active Substance: ETHINYL ESTRADIOL\NORELGESTROMIN
     Dosage: 150-35 MCG/24 H PATCH, APPLY ONTO SKIN ONCE EVERY WEEK
     Route: 061
  14. ABILIFY [Concomitant]
     Active Substance: ARIPIPRAZOLE
     Indication: GENERALISED ANXIETY DISORDER
     Dosage: 2 MG, QHS
  15. SENOKOT [Concomitant]
     Active Substance: SENNOSIDES
     Dosage: 17.2 MG, QHS
     Route: 048
  16. LINACLOTIDE 72?G CAP [Suspect]
     Active Substance: LINACLOTIDE
     Indication: CONSTIPATION
     Dosage: 72 ?G, QD
     Route: 048
     Dates: start: 20201026, end: 20201104
  17. ZOLOFT [Concomitant]
     Active Substance: SERTRALINE HYDROCHLORIDE
     Indication: ANXIETY

REACTIONS (1)
  - Diarrhoea [Recovered/Resolved]

NARRATIVE: CASE EVENT DATE: 20201104
